FAERS Safety Report 14257634 (Version 1)
Quarter: 2017Q4

REPORT INFORMATION
  Report Type: Spontaneous
  Country: US (occurrence: US)
  Receive Date: 20171207
  Receipt Date: 20171207
  Transmission Date: 20180321
  Serious: Yes (Other)
  Sender: FDA-Public Use
  Company Number: US-CIPLA LTD.-2017US19412

PATIENT

DRUGS (3)
  1. ARIPIPRAZOLE. [Suspect]
     Active Substance: ARIPIPRAZOLE
     Indication: BEHAVIOURAL THERAPY
     Dosage: 20 MG, QAM
     Route: 065
  2. LAMOTRIGINE. [Suspect]
     Active Substance: LAMOTRIGINE
     Indication: BEHAVIOURAL THERAPY
     Dosage: 300 MG, QHS
     Route: 065
  3. BUPROPION HYDROCHLORIDE XL [Suspect]
     Active Substance: BUPROPION HYDROCHLORIDE
     Indication: BEHAVIOURAL THERAPY
     Dosage: 450 MG, QAM
     Route: 065

REACTIONS (2)
  - Depression [Recovering/Resolving]
  - Drug ineffective [Unknown]
